FAERS Safety Report 6169148-8 (Version None)
Quarter: 2009Q2

REPORT INFORMATION
  Report Type: 
  Country: None (occurrence: None)
  Receive Date: 20090427
  Receipt Date: 20090409
  Transmission Date: 20091009
  Serious: Yes (Death, Other)
  Sender: FDA-Public Use
  Company Number: FR-PFIZER INC-2008038006

PATIENT
  Sex: Male

DRUGS (3)
  1. VORICONAZOLE [Suspect]
     Route: 048
     Dates: start: 20031001
  2. FLUCONAZOLE [Concomitant]
     Route: 042
     Dates: start: 20030401
  3. FLUCONAZOLE [Concomitant]
     Route: 048
     Dates: start: 20030101

REACTIONS (2)
  - PHOTOSENSITIVITY REACTION [None]
  - SQUAMOUS CELL CARCINOMA [None]
